FAERS Safety Report 11701002 (Version 1)
Quarter: 2015Q4

REPORT INFORMATION
  Report Type: Report from Study
  Country: US (occurrence: US)
  Receive Date: 20151105
  Receipt Date: 20151105
  Transmission Date: 20160304
  Serious: Yes (Other)
  Sender: FDA-Public Use
  Company Number: US-BAXALTA-2015BAX021167

PATIENT
  Sex: Female

DRUGS (1)
  1. HYQVIA [Suspect]
     Active Substance: HUMAN IMMUNOGLOBULIN G\HYALURONIDASE RECOMBINANT HUMAN
     Indication: PRIMARY IMMUNODEFICIENCY SYNDROME
     Dosage: UNK UNK, 1X A MONTH
     Route: 058

REACTIONS (9)
  - Tinnitus [Not Recovered/Not Resolved]
  - Gastrointestinal viral infection [Recovering/Resolving]
  - Upper respiratory tract infection [Recovering/Resolving]
  - Malabsorption from injection site [Recovering/Resolving]
  - Sinusitis [Recovering/Resolving]
  - Migraine [Not Recovered/Not Resolved]
  - Infusion site erythema [Recovering/Resolving]
  - Infusion site scar [Recovering/Resolving]
  - Middle ear effusion [Recovering/Resolving]
